FAERS Safety Report 16866766 (Version 1)
Quarter: 2019Q3

REPORT INFORMATION
  Report Type: Spontaneous
  Country: GB (occurrence: GB)
  Receive Date: 20190930
  Receipt Date: 20190930
  Transmission Date: 20191005
  Serious: Yes (Hospitalization, Other)
  Sender: FDA-Public Use
  Company Number: GB-ACCORD-129775

PATIENT
  Age: 37 Year
  Sex: Male

DRUGS (4)
  1. QUETIAPINE. [Suspect]
     Active Substance: QUETIAPINE
     Indication: SCHIZOPHRENIA
     Dosage: 700 MG
  2. LITHIUM. [Suspect]
     Active Substance: LITHIUM
     Indication: PRODUCT USED FOR UNKNOWN INDICATION
  3. VALPROIC ACID. [Concomitant]
     Active Substance: VALPROIC ACID
     Dosage: UNK
  4. CLOZAPINE. [Suspect]
     Active Substance: CLOZAPINE
     Indication: SCHIZOPHRENIA
     Dosage: UNK, ALSO RECEIVED UNK DOSE FROM 12-DEC-2016 TO 24-MAY-2018
     Route: 048
     Dates: end: 20190212

REACTIONS (10)
  - White blood cell count decreased [Recovered/Resolved]
  - Leukocytosis [Recovering/Resolving]
  - Mental impairment [Unknown]
  - Nasopharyngitis [Unknown]
  - Sepsis [Unknown]
  - Neutrophil count decreased [Recovered/Resolved]
  - Lower respiratory tract infection [Unknown]
  - Platelet count increased [Recovered/Resolved]
  - Neutrophil count increased [Not Recovered/Not Resolved]
  - Agranulocytosis [Recovered/Resolved]

NARRATIVE: CASE EVENT DATE: 20180412
